FAERS Safety Report 18441461 (Version 1)
Quarter: 2020Q4

REPORT INFORMATION
  Report Type: Spontaneous
  Country: CN (occurrence: CN)
  Receive Date: 20201029
  Receipt Date: 20201029
  Transmission Date: 20210114
  Serious: Yes (Other)
  Sender: FDA-Public Use
  Company Number: CN-009507513-2010CHN009266

PATIENT
  Age: 51 Year
  Sex: Male
  Weight: 65 kg

DRUGS (2)
  1. SODIUM CHLORIDE. [Concomitant]
     Active Substance: SODIUM CHLORIDE
     Dosage: 150 ML, 4 TIMES A DAY
     Route: 041
     Dates: start: 20201013, end: 20201014
  2. TIENAM [Suspect]
     Active Substance: CILASTATIN SODIUM\IMIPENEM
     Indication: INFECTION
     Dosage: 1 G, 4 TIMES A DAY (Q6H)
     Route: 041
     Dates: start: 20201013, end: 20201014

REACTIONS (2)
  - Seizure [Recovering/Resolving]
  - Febrile infection [Recovering/Resolving]

NARRATIVE: CASE EVENT DATE: 202010
